FAERS Safety Report 24133090 (Version 1)
Quarter: 2024Q3

REPORT INFORMATION
  Report Type: Spontaneous
  Country: US (occurrence: None)
  Receive Date: 20240723
  Receipt Date: 20240723
  Transmission Date: 20241016
  Serious: Yes (unspecified)
  Sender: Public
  Company Number: None

PATIENT
  Age: 56 Year
  Sex: Female
  Weight: 122.47 kg

DRUGS (1)
  1. ROBAXIN [Suspect]
     Active Substance: METHOCARBAMOL
     Dosage: FREQUENCY : 4 TIMES A DAY;?
     Route: 048

REACTIONS (16)
  - Fall [None]
  - Dizziness [None]
  - Head injury [None]
  - Pain [None]
  - Headache [None]
  - Nausea [None]
  - Hypoacusis [None]
  - Feeling of body temperature change [None]
  - Medical device site pain [None]
  - Therapy change [None]
  - Therapy cessation [None]
  - Neck pain [None]
  - Medical device site swelling [None]
  - Tachycardia [None]
  - Incision site erythema [None]
  - Medical device site warmth [None]

NARRATIVE: CASE EVENT DATE: 20240722
